FAERS Safety Report 23353878 (Version 3)
Quarter: 2024Q3

REPORT INFORMATION
  Report Type: Spontaneous
  Country: NL (occurrence: NL)
  Receive Date: 20240101
  Receipt Date: 20240805
  Transmission Date: 20241016
  Serious: Yes (Other)
  Sender: AUROBINDO
  Company Number: NL-ADIENNEP-2023AD001004

PATIENT
  Age: 19 Year
  Sex: Male

DRUGS (30)
  1. CYCLOSPORINE [Suspect]
     Active Substance: CYCLOSPORINE
     Indication: Prophylaxis against graft versus host disease
     Dosage: UNK
     Route: 065
     Dates: start: 201709
  2. CYCLOSPORINE [Suspect]
     Active Substance: CYCLOSPORINE
     Indication: Graft versus host disease
  3. FLUDARABINE [Suspect]
     Active Substance: FLUDARABINE PHOSPHATE
     Indication: Allogenic stem cell transplantation
     Dosage: 50 MILLIGRAM/SQ. METER (3 DAYS)
     Route: 065
     Dates: start: 201709, end: 201709
  4. FLUDARABINE [Suspect]
     Active Substance: FLUDARABINE PHOSPHATE
     Indication: Bone marrow conditioning regimen
  5. FLUDARABINE [Suspect]
     Active Substance: FLUDARABINE PHOSPHATE
     Indication: Central nervous system lymphoma
  6. MELPHALAN [Suspect]
     Active Substance: MELPHALAN
     Indication: Stem cell transplant
     Dosage: UNK
     Route: 065
  7. MELPHALAN [Suspect]
     Active Substance: MELPHALAN
     Indication: Bone marrow conditioning regimen
  8. PREDNISOLONE [Suspect]
     Active Substance: PREDNISOLONE
     Indication: Central nervous system lymphoma
     Dosage: THREE CYCLE
     Route: 065
     Dates: start: 201702, end: 2017
  9. BUSULFAN [Suspect]
     Active Substance: BUSULFAN
     Indication: Stem cell transplant
     Dosage: 3.2 MILLIGRAM/KILOGRAM (3 DAYS)
     Route: 065
     Dates: start: 201709, end: 201709
  10. BUSULFAN [Suspect]
     Active Substance: BUSULFAN
     Indication: Central nervous system lymphoma
  11. BUSULFAN [Suspect]
     Active Substance: BUSULFAN
     Indication: Bone marrow conditioning regimen
  12. MYCOPHENOLIC ACID [Suspect]
     Active Substance: MYCOPHENOLIC ACID
     Indication: Prophylaxis against graft versus host disease
     Dosage: UNK
     Route: 065
     Dates: start: 201709
  13. MYCOPHENOLIC ACID [Suspect]
     Active Substance: MYCOPHENOLIC ACID
     Indication: Graft versus host disease
  14. THIOTEPA [Suspect]
     Active Substance: THIOTEPA
     Indication: Allogenic stem cell transplantation
     Dosage: 5 MILLIGRAM/KILOGRAM (2 DAYS)
     Route: 065
     Dates: start: 201709, end: 201709
  15. THIOTEPA [Suspect]
     Active Substance: THIOTEPA
     Indication: Central nervous system lymphoma
  16. THIOTEPA [Suspect]
     Active Substance: THIOTEPA
     Indication: Bone marrow conditioning regimen
  17. ALEMTUZUMAB [Suspect]
     Active Substance: ALEMTUZUMAB
     Indication: Bone marrow conditioning regimen
     Dosage: UNK
     Route: 065
  18. ALEMTUZUMAB [Suspect]
     Active Substance: ALEMTUZUMAB
     Indication: Stem cell transplant
  19. CYCLOPHOSPHAMIDE [Suspect]
     Active Substance: CYCLOPHOSPHAMIDE
     Indication: Bone marrow conditioning regimen
     Dosage: 5.5 MILLILITRE PER SQUARE METRE
     Route: 065
  20. CYCLOPHOSPHAMIDE [Suspect]
     Active Substance: CYCLOPHOSPHAMIDE
     Indication: Stem cell transplant
  21. CARMUSTINE [Suspect]
     Active Substance: CARMUSTINE
     Indication: Central nervous system lymphoma
     Dosage: TWO CYCLES
     Route: 065
  22. CARMUSTINE [Suspect]
     Active Substance: CARMUSTINE
     Dosage: THREE CYCLE
     Route: 065
     Dates: start: 201702, end: 2017
  23. TENIPOSIDE [Suspect]
     Active Substance: TENIPOSIDE
     Indication: Central nervous system lymphoma
     Dosage: TWO CYCLES
     Route: 065
  24. TENIPOSIDE [Suspect]
     Active Substance: TENIPOSIDE
     Dosage: THREE CYCLE
     Route: 065
     Dates: start: 201702, end: 2017
  25. METHOTREXATE [Suspect]
     Active Substance: METHOTREXATE
     Indication: Central nervous system lymphoma
     Dosage: TWO CYCLES
     Route: 065
  26. METHOTREXATE [Suspect]
     Active Substance: METHOTREXATE
     Dosage: THREE CYCLE
     Route: 065
     Dates: start: 201702, end: 2017
  27. AMPHOTERICIN B [Concomitant]
     Active Substance: AMPHOTERICIN B
     Indication: Bronchopulmonary aspergillosis
     Dosage: UNK
     Route: 065
     Dates: start: 2015, end: 2017
  28. AMPHOTERICIN B [Concomitant]
     Active Substance: AMPHOTERICIN B
     Dosage: UNK
     Dates: start: 2017
  29. LEVETIRACETAM [Concomitant]
     Active Substance: LEVETIRACETAM
     Indication: Epilepsy
     Dosage: DOSE INCREASED
     Route: 065
     Dates: start: 2017
  30. LEVETIRACETAM [Concomitant]
     Active Substance: LEVETIRACETAM
     Dosage: UNK
     Route: 065
     Dates: start: 2017, end: 2017

REACTIONS (6)
  - Cytomegalovirus infection reactivation [Unknown]
  - Chronic graft versus host disease [Unknown]
  - Cardiomyopathy [Unknown]
  - Epilepsy [Unknown]
  - Mucosal inflammation [Unknown]
  - Osteonecrosis [Unknown]

NARRATIVE: CASE EVENT DATE: 20170101
